FAERS Safety Report 14031043 (Version 1)
Quarter: 2017Q4

REPORT INFORMATION
  Report Type: Spontaneous
  Country: AR (occurrence: AR)
  Receive Date: 20171002
  Receipt Date: 20171002
  Transmission Date: 20180321
  Serious: Yes (Hospitalization)
  Sender: FDA-Public Use
  Company Number: AR-NOVAST LABORATORIES, LTD-AR-2017NOV000063

PATIENT
  Age: 33 Year
  Sex: Male

DRUGS (2)
  1. INDOMETHACIN. [Suspect]
     Active Substance: INDOMETHACIN
     Dosage: 0.5 MG/KG/HOUR
     Route: 042
  2. INDOMETHACIN. [Suspect]
     Active Substance: INDOMETHACIN
     Indication: INTRACRANIAL PRESSURE INCREASED
     Dosage: 0.8 MG/KG, SINGLE (LOADING DOSE)
     Route: 042

REACTIONS (4)
  - Thrombocytopenia [Unknown]
  - Intracranial pressure increased [Unknown]
  - Renal injury [Unknown]
  - Cerebral ischaemia [Unknown]
